FAERS Safety Report 6865488-5 (Version None)
Quarter: 2010Q3

REPORT INFORMATION
  Report Type: 
  Country: None (occurrence: None)
  Receive Date: 20100721
  Receipt Date: 20080702
  Transmission Date: 20110219
  Serious: Yes (Other)
  Sender: FDA-Public Use
  Company Number: US-PFIZER INC-2008035408

PATIENT
  Sex: Female
  Weight: 89.8 kg

DRUGS (16)
  1. CHANTIX [Suspect]
     Indication: SMOKING CESSATION THERAPY
     Route: 048
     Dates: start: 20080125, end: 20080128
  2. CHANTIX [Suspect]
     Indication: TOBACCO USER
  3. SYNTHROID [Concomitant]
  4. HYDROCODONE [Concomitant]
  5. NORFLEX [Concomitant]
  6. CHLORZOXAZONE [Concomitant]
  7. IMITREX [Concomitant]
     Indication: MIGRAINE
  8. LIDOCAINE [Concomitant]
  9. VESICARE [Concomitant]
  10. ATROVENT [Concomitant]
     Route: 045
  11. ADVAIR DISKUS 100/50 [Concomitant]
  12. XANAX [Concomitant]
  13. PRILOSEC [Concomitant]
  14. ALBUTEROL [Concomitant]
  15. PARAFON FORTE [Concomitant]
  16. SPIRIVA [Concomitant]

REACTIONS (6)
  - DYSPNOEA [None]
  - HEADACHE [None]
  - HYPERTENSION [None]
  - MEDICATION ERROR [None]
  - MIDDLE INSOMNIA [None]
  - WEIGHT INCREASED [None]
